FAERS Safety Report 22751177 (Version 3)
Quarter: 2024Q1

REPORT INFORMATION
  Report Type: Spontaneous
  Country: US (occurrence: US)
  Receive Date: 20230726
  Receipt Date: 20240306
  Transmission Date: 20240410
  Serious: Yes (Disabling)
  Sender: FDA-Public Use
  Company Number: US-SA-SAC20230726000227

PATIENT
  Sex: Female

DRUGS (10)
  1. DUPIXENT [Suspect]
     Active Substance: DUPILUMAB
     Indication: Asthma
     Dosage: 600 MG, 1X
     Route: 058
  2. DUPIXENT [Suspect]
     Active Substance: DUPILUMAB
     Dosage: 300 MG, QOW
  3. ALBUTEROL SULFATE [Concomitant]
     Active Substance: ALBUTEROL SULFATE
     Dosage: UNK
  4. BREO ELLIPTA [Concomitant]
     Active Substance: FLUTICASONE FUROATE\VILANTEROL TRIFENATATE
     Dosage: AEP 200 25MC
  5. CALCIUM [Concomitant]
     Active Substance: CALCIUM
     Dosage: 600 TAB 1500 (60M
  6. ESTRADIOL [Concomitant]
     Active Substance: ESTRADIOL
  7. FLONASE ALLERGY RELIEF [Concomitant]
     Active Substance: FLUTICASONE PROPIONATE
     Dosage: UNK
  8. LIPITOR [Concomitant]
     Active Substance: ATORVASTATIN CALCIUM
     Dosage: UNK
  9. SERTRALINE HYDROCHLORIDE [Concomitant]
     Active Substance: SERTRALINE HYDROCHLORIDE
     Dosage: UNK
  10. BIOTIN [Concomitant]
     Active Substance: BIOTIN
     Dosage: UNK

REACTIONS (13)
  - Loss of personal independence in daily activities [Unknown]
  - Fatigue [Unknown]
  - Initial insomnia [Unknown]
  - Cough [Unknown]
  - Hyperphagia [Unknown]
  - Dyspnoea [Unknown]
  - Productive cough [Unknown]
  - Depression [Unknown]
  - Decreased interest [Unknown]
  - Asthenia [Unknown]
  - Hyperphagia [Unknown]
  - Disturbance in attention [Unknown]
  - Insomnia [Unknown]
